FAERS Safety Report 17296988 (Version 6)
Quarter: 2023Q1

REPORT INFORMATION
  Report Type: Other
  Country: HR (occurrence: HR)
  Receive Date: 20200122
  Receipt Date: 20230317
  Transmission Date: 20230418
  Serious: Yes (Death, Life-Threatening, Hospitalization, Disabling)
  Sender: FDA-Public Use
  Company Number: HR-CHEPLA-C20193497

PATIENT
  Age: 40 Year
  Sex: Female

DRUGS (27)
  1. AZACITIDINE [Suspect]
     Active Substance: AZACITIDINE
     Indication: Acute myeloid leukaemia
     Dosage: THREE CYCLES
     Route: 065
  2. DOXORUBICIN [Suspect]
     Active Substance: DOXORUBICIN
     Indication: Diffuse large B-cell lymphoma stage IV
     Dosage: FIVE CYCLES ( R-CHOEP PROTOCOL) AND THREE CYCLES (R-CHEVP PROTOCOL)
     Route: 065
  3. DOXORUBICIN [Suspect]
     Active Substance: DOXORUBICIN
     Dosage: FIVE CYCLES ( R-CHOEP PROTOCOL) AND THREE CYCLES (R-CHEVP PROTOCOL)
     Route: 065
  4. RITUXIMAB [Suspect]
     Active Substance: RITUXIMAB
     Indication: Diffuse large B-cell lymphoma stage IV
     Dosage: FIVE CYCLES ( R-CHOEP PROTOCOL) AND THREE CYCLES (R-CHEVP PROTOCOL)
     Route: 065
  5. RITUXIMAB [Suspect]
     Active Substance: RITUXIMAB
     Dosage: FIVE CYCLES ( R-CHOEP PROTOCOL) AND THREE CYCLES (R-CHEVP PROTOCOL)
     Route: 065
  6. METHYLPREDNISOLONE [Suspect]
     Active Substance: METHYLPREDNISOLONE
     Indication: Diffuse large B-cell lymphoma stage IV
     Dosage: FIVE CYCLES ( R-CHOEP PROTOCOL) AND THREE CYCLES (R-CHEVP PROTOCOL)
     Route: 065
  7. METHYLPREDNISOLONE [Suspect]
     Active Substance: METHYLPREDNISOLONE
     Dosage: FIVE CYCLES ( R-CHOEP PROTOCOL) AND THREE CYCLES (R-CHEVP PROTOCOL)
     Route: 065
  8. ETOPOSIDE [Suspect]
     Active Substance: ETOPOSIDE
     Indication: Diffuse large B-cell lymphoma stage IV
     Dosage: FIVE CYCLES ( R-CHOEP PROTOCOL) AND THREE CYCLES (R-CHEVP PROTOCOL)
     Route: 065
  9. ETOPOSIDE [Suspect]
     Active Substance: ETOPOSIDE
     Dosage: FIVE CYCLES ( R-CHOEP PROTOCOL) AND THREE CYCLES (R-CHEVP PROTOCOL)
     Route: 065
  10. CYCLOPHOSPHAMIDE [Suspect]
     Active Substance: CYCLOPHOSPHAMIDE
     Indication: Diffuse large B-cell lymphoma stage IV
     Dosage: FIVE CYCLES ( R-CHOEP PROTOCOL) AND THREE CYCLES (R-CHEVP PROTOCOL)
     Route: 065
  11. CYCLOPHOSPHAMIDE [Suspect]
     Active Substance: CYCLOPHOSPHAMIDE
     Dosage: FIVE CYCLES ( R-CHOEP PROTOCOL) AND THREE CYCLES (R-CHEVP PROTOCOL)
     Route: 065
  12. CIPROFLOXACIN [Suspect]
     Active Substance: CIPROFLOXACIN
     Indication: Antibiotic prophylaxis
     Dosage: ( R-CHOEP PROTOCOL)
     Route: 065
  13. VINCRISTINE [Suspect]
     Active Substance: VINCRISTINE
     Indication: Diffuse large B-cell lymphoma stage IV
     Dosage: FIVE CYCLES ( R-CHOEP PROTOCOL)
     Route: 065
  14. VINBLASTINE [Suspect]
     Active Substance: VINBLASTINE
     Indication: Diffuse large B-cell lymphoma stage IV
     Dosage: THREE CYCLES (R-CHEVP PROTOCOL)
     Route: 065
  15. ACYCLOVIR [Suspect]
     Active Substance: ACYCLOVIR
     Indication: Antibiotic prophylaxis
     Route: 065
  16. THIOGUANINE [Suspect]
     Active Substance: THIOGUANINE
     Indication: Refractory anaemia with an excess of blasts
     Route: 065
  17. FLUCONAZOLE [Suspect]
     Active Substance: FLUCONAZOLE
     Indication: Antibiotic prophylaxis
     Route: 065
  18. DOXYCYCLINE HYDROCHLORIDE [Suspect]
     Active Substance: DOXYCYCLINE HYDROCHLORIDE
     Indication: Product used for unknown indication
     Dosage: THREE CYCLES (R-CHEVP PROTOCOL)
     Route: 065
  19. DIFLUCAN [Concomitant]
     Active Substance: FLUCONAZOLE
  20. ACYCLOVIR [Concomitant]
     Active Substance: ACYCLOVIR
     Indication: Infection prophylaxis
  21. FUROSEMIDE [Concomitant]
     Active Substance: FUROSEMIDE
  22. CARVEDILOL [Concomitant]
     Active Substance: CARVEDILOL
  23. BETAMETHASONE DIPROPIONATE [Concomitant]
     Active Substance: BETAMETHASONE DIPROPIONATE
  24. CONTROLOC [Concomitant]
     Active Substance: PANTOPRAZOLE SODIUM
  25. RAMIPRIL [Concomitant]
     Active Substance: RAMIPRIL
  26. ALDACTONE [Concomitant]
     Active Substance: SPIRONOLACTONE
  27. GELCLAIR [HYALURONATE SODIUM;POVIDONE] [Concomitant]

REACTIONS (17)
  - Aspergillus infection [Fatal]
  - Staphylococcal sepsis [Fatal]
  - Sinusitis [Fatal]
  - Acute myeloid leukaemia [Unknown]
  - Neutropenia [Unknown]
  - Congestive cardiomyopathy [Unknown]
  - Toxic neuropathy [Unknown]
  - Myelodysplastic syndrome [Unknown]
  - Pancytopenia [Unknown]
  - Leukaemia [Unknown]
  - Mouth ulceration [Unknown]
  - Refractory anaemia with an excess of blasts [Unknown]
  - Thrombocytopenia [Unknown]
  - Toxicity to various agents [Unknown]
  - Gingival ulceration [Not Recovered/Not Resolved]
  - Enterococcal infection [Unknown]
  - Stenotrophomonas infection [Unknown]
